FAERS Safety Report 14700254 (Version 1)
Quarter: 2018Q1

REPORT INFORMATION
  Report Type: Spontaneous
  Country: IT (occurrence: IT)
  Receive Date: 20180330
  Receipt Date: 20180330
  Transmission Date: 20180509
  Serious: Yes (Other)
  Sender: FDA-Public Use
  Company Number: IT-ASTRAZENECA-2017SE69150

PATIENT
  Age: 27578 Day
  Sex: Male

DRUGS (11)
  1. NORVASC [Concomitant]
     Active Substance: AMLODIPINE BESYLATE
  2. TORVAST [Concomitant]
     Active Substance: ATORVASTATIN
  3. BRILIQUE [Suspect]
     Active Substance: TICAGRELOR
     Indication: THROMBOSIS PROPHYLAXIS
     Route: 048
     Dates: start: 20161005, end: 20170630
  4. PANTORC [Concomitant]
     Active Substance: PANTOPRAZOLE SODIUM
  5. METOPROLOL SUCCINATE. [Concomitant]
     Active Substance: METOPROLOL SUCCINATE
  6. TRIATEC [Concomitant]
     Active Substance: RAMIPRIL
  7. ALLOPURINOL. [Concomitant]
     Active Substance: ALLOPURINOL
  8. TAVOR (LORAZEPAM) [Concomitant]
     Active Substance: LORAZEPAM
  9. OMNIC [Concomitant]
     Active Substance: TAMSULOSIN HYDROCHLORIDE
  10. KCL RETARD [Concomitant]
     Active Substance: POTASSIUM CHLORIDE
  11. CARDIOASPIRIN [Suspect]
     Active Substance: ASPIRIN
     Indication: THROMBOSIS PROPHYLAXIS
     Route: 048

REACTIONS (3)
  - Perineal pain [Unknown]
  - Pain [Unknown]
  - Haematuria [Unknown]

NARRATIVE: CASE EVENT DATE: 20170629
